FAERS Safety Report 5585356-9 (Version None)
Quarter: 2008Q1

REPORT INFORMATION
  Report Type: 
  Country: None (occurrence: None)
  Receive Date: 20080104
  Receipt Date: 20080104
  Transmission Date: 20080703
  Serious: Yes (Life-Threatening, Hospitalization)
  Sender: FDA-Public Use
  Company Number: None

PATIENT
  Sex: Female
  Weight: 52.1 kg

DRUGS (12)
  1. HEPARIN [Suspect]
     Indication: PULMONARY EMBOLISM
     Dosage: TITRATED CONTINUOUS INFUSION
  2. ATOVAQUONE [Concomitant]
  3. CASPOFUNGIN [Concomitant]
  4. GANCICLOVIR [Concomitant]
  5. INSULIN [Concomitant]
  6. LANSOPRAZOLE [Concomitant]
  7. MEROPENIM [Concomitant]
  8. METHYLPREDNISOLONE [Concomitant]
  9. TACROLIMUS [Concomitant]
  10. URSODIOL [Concomitant]
  11. VANCOMYCIN [Concomitant]
  12. MORPHINE [Concomitant]

REACTIONS (1)
  - PLATELET COUNT DECREASED [None]
